FAERS Safety Report 5818382-2 (Version None)
Quarter: 2008Q3

REPORT INFORMATION
  Report Type: 
  Country: None (occurrence: None)
  Receive Date: 20080716
  Receipt Date: 20080708
  Transmission Date: 20090109
  Serious: Yes (Death, Other)
  Sender: FDA-Public Use
  Company Number: 217-C5013-08061833

PATIENT
  Age: 64 Year
  Sex: Female
  Weight: 72 kg

DRUGS (5)
  1. CC-5013 (LENALIDOMIDE) (CAPSULES) [Suspect]
     Indication: MULTIPLE MYELOMA
     Dosage: 25 MG, ORAL
     Route: 048
     Dates: start: 20080507, end: 20080624
  2. DEXAMETHASONE TAB [Concomitant]
  3. NEURONTIN (GABAPENTIN) (100 MILLIGRAM) [Concomitant]
  4. VERAL (DICLOFENAC SODIUM) [Concomitant]
  5. ANOPYRIN (ACETYLSALICYLIC ACID) [Concomitant]

REACTIONS (5)
  - ACUTE RESPIRATORY DISTRESS SYNDROME [None]
  - CHOLECYSTITIS ACUTE [None]
  - NEUTROPENIA [None]
  - RESPIRATORY FAILURE [None]
  - SEPSIS [None]
